FAERS Safety Report 18090726 (Version 2)
Quarter: 2020Q4

REPORT INFORMATION
  Report Type: Spontaneous
  Country: US (occurrence: US)
  Receive Date: 20200730
  Receipt Date: 20201007
  Transmission Date: 20210113
  Serious: No
  Sender: FDA-Public Use
  Company Number: US-SA-2020SA196457

PATIENT

DRUGS (1)
  1. PRALUENT [Suspect]
     Active Substance: ALIROCUMAB
     Indication: HYPERCHOLESTEROLAEMIA
     Dosage: 75 MG, UNK
     Route: 058
     Dates: start: 20200713

REACTIONS (2)
  - Injection site haemorrhage [Unknown]
  - Device use issue [Unknown]

NARRATIVE: CASE EVENT DATE: 20200713
